FAERS Safety Report 15854345 (Version 2)
Quarter: 2019Q1

REPORT INFORMATION
  Report Type: Spontaneous
  Country: US (occurrence: US)
  Receive Date: 20190122
  Receipt Date: 20190201
  Transmission Date: 20190417
  Serious: Yes (Other)
  Sender: FDA-Public Use
  Company Number: US-TEVA-2019-US-997907

PATIENT
  Sex: Female

DRUGS (5)
  1. PROVIGIL [Suspect]
     Active Substance: MODAFINIL
     Indication: SOMNOLENCE
  2. PROVIGIL [Suspect]
     Active Substance: MODAFINIL
  3. PROVIGIL [Suspect]
     Active Substance: MODAFINIL
     Dosage: 1200 MILLIGRAM DAILY;
  4. ABILIFY [Concomitant]
     Active Substance: ARIPIPRAZOLE
  5. ZOLPIDEM [Concomitant]
     Active Substance: ZOLPIDEM\ZOLPIDEM TARTRATE

REACTIONS (9)
  - Neurological symptom [Unknown]
  - Product use issue [Unknown]
  - Headache [Unknown]
  - Feeling abnormal [Unknown]
  - Drug ineffective [Unknown]
  - Loss of consciousness [Unknown]
  - Product dose omission [Unknown]
  - Drug dependence [Unknown]
  - Pain [Unknown]
